FAERS Safety Report 9961918 (Version 1)
Quarter: 2014Q1

REPORT INFORMATION
  Report Type: Report from Study
  Country: US (occurrence: US)
  Receive Date: 20140305
  Receipt Date: 20140305
  Transmission Date: 20141002
  Serious: No
  Sender: FDA-Public Use
  Company Number: US-ABBVIE-13P-163-1113632-00

PATIENT
  Sex: Female

DRUGS (7)
  1. HUMIRA [Suspect]
     Indication: CROHN^S DISEASE
  2. PENTASA [Concomitant]
     Indication: CROHN^S DISEASE
     Route: 048
  3. PREVACID [Concomitant]
     Indication: CROHN^S DISEASE
     Route: 048
  4. CARDIZEM CD [Concomitant]
     Indication: HYPERTENSION
     Route: 048
  5. AVAPRO [Concomitant]
     Indication: HYPERTENSION
     Route: 048
  6. BACLOFEN [Concomitant]
     Indication: ARTHRITIS
  7. BACLOFEN [Concomitant]
     Indication: INTERVERTEBRAL DISC DEGENERATION

REACTIONS (1)
  - Injection site pain [Recovered/Resolved]
